FAERS Safety Report 25435267 (Version 2)
Quarter: 2025Q3

REPORT INFORMATION
  Report Type: Report from Study
  Country: EU (occurrence: EU)
  Receive Date: 20250613
  Receipt Date: 20250710
  Transmission Date: 20251020
  Serious: Yes (Death, Hospitalization)
  Sender: ABBVIE
  Company Number: EU-ABBVIE-6326565

PATIENT
  Age: 70 Year
  Sex: Female
  Weight: 70 kg

DRUGS (1)
  1. HUMIRA [Suspect]
     Active Substance: ADALIMUMAB
     Indication: Hidradenitis
     Dosage: FORM STRENGTH 80 MG
     Route: 058
     Dates: start: 20200407, end: 20250114

REACTIONS (8)
  - Acute respiratory failure [Fatal]
  - Altered state of consciousness [Fatal]
  - Nosocomial infection [Fatal]
  - Restlessness [Fatal]
  - Stupor [Fatal]
  - Sepsis [Fatal]
  - COVID-19 pneumonia [Fatal]
  - Cardiovascular insufficiency [Fatal]

NARRATIVE: CASE EVENT DATE: 20250121
